FAERS Safety Report 9119377 (Version 1)
Quarter: 2013Q1

REPORT INFORMATION
  Report Type: Spontaneous
  Country: US (occurrence: None)
  Receive Date: 20130221
  Receipt Date: 20130221
  Transmission Date: 20140127
  Serious: Yes (Death)
  Sender: FDA-Public Use
  Company Number: None

PATIENT
  Age: 4 Month
  Sex: Female
  Weight: 7 kg

DRUGS (1)
  1. ANAKINRA [Suspect]
     Indication: HISTIOCYTOSIS HAEMATOPHAGIC
     Dates: start: 20130131, end: 20130203

REACTIONS (5)
  - Shock [None]
  - Metabolic acidosis [None]
  - Lactic acidosis [None]
  - No therapeutic response [None]
  - General physical health deterioration [None]
